FAERS Safety Report 8588131 (Version 3)
Quarter: 2013Q4

REPORT INFORMATION
  Report Type: Report from Study
  Country: JP (occurrence: JP)
  Receive Date: 20120531
  Receipt Date: 20131231
  Transmission Date: 20140711
  Serious: Yes (Life-Threatening, Other)
  Sender: FDA-Public Use
  Company Number: JP-CELGENEUS-087-21880-11043307

PATIENT
  Age: 69 Year
  Sex: Female

DRUGS (85)
  1. REVLIMID [Suspect]
     Indication: PLASMA CELL MYELOMA
     Dosage: 15 MILLIGRAM
     Route: 048
     Dates: start: 20110228, end: 20110320
  2. REVLIMID [Suspect]
     Dosage: 15 MILLIGRAM
     Route: 048
     Dates: start: 20110330, end: 20110404
  3. REVLIMID [Suspect]
     Dosage: 10 MILLIGRAM
     Route: 048
     Dates: start: 20110405, end: 20110411
  4. REVLIMID [Suspect]
     Dosage: 10 MILLIGRAM
     Route: 048
     Dates: start: 20110511, end: 20110524
  5. REVLIMID [Suspect]
     Dosage: 10 MILLIGRAM
     Route: 048
     Dates: start: 20110608, end: 20110628
  6. REVLIMID [Suspect]
     Dosage: 10 MILLIGRAM
     Route: 048
     Dates: start: 20110706, end: 20110726
  7. REVLIMID [Suspect]
     Dosage: 10 MILLIGRAM
     Route: 048
     Dates: start: 20110803, end: 20110823
  8. REVLIMID [Suspect]
     Dosage: 10 MILLIGRAM
     Route: 048
     Dates: start: 20110831, end: 20110920
  9. REVLIMID [Suspect]
     Dosage: 10 MILLIGRAM
     Route: 048
     Dates: start: 20110928, end: 20111009
  10. REVLIMID [Suspect]
     Dosage: 10 MILLIGRAM
     Route: 048
     Dates: start: 20111123, end: 20111213
  11. REVLIMID [Suspect]
     Dosage: 10 MILLIGRAM
     Route: 048
     Dates: start: 20111221, end: 20120110
  12. REVLIMID [Suspect]
     Dosage: 15 MILLIGRAM
     Route: 048
     Dates: start: 20120118, end: 20120207
  13. REVLIMID [Suspect]
     Dosage: 15 MILLIGRAM
     Route: 048
     Dates: start: 20120215, end: 20120306
  14. REVLIMID [Suspect]
     Dosage: 15 MILLIGRAM
     Route: 048
     Dates: start: 20120316, end: 20120405
  15. REVLIMID [Suspect]
     Dosage: 15 MILLIGRAM
     Route: 048
     Dates: start: 20120411, end: 20120501
  16. REVLIMID [Suspect]
     Dosage: 15 MILLIGRAM
     Route: 048
     Dates: start: 20120509, end: 20120529
  17. REVLIMID [Suspect]
     Dosage: 15 MILLIGRAM
     Route: 048
     Dates: start: 20120606, end: 20120626
  18. REVLIMID [Suspect]
     Dosage: 15 MILLIGRAM
     Route: 048
     Dates: start: 20120704, end: 20120724
  19. REVLIMID [Suspect]
     Dosage: 15 MILLIGRAM
     Route: 048
     Dates: start: 20120801, end: 20120821
  20. REVLIMID [Suspect]
     Dosage: 15 MILLIGRAM
     Route: 048
     Dates: start: 20120829, end: 20120918
  21. REVLIMID [Suspect]
     Dosage: 10 MILLIGRAM
     Route: 048
     Dates: start: 20121003, end: 20121023
  22. LENADEX [Suspect]
     Indication: PLASMA CELL MYELOMA
     Dosage: 40 MILLIGRAM
     Route: 048
     Dates: start: 20110228, end: 20110327
  23. LENADEX [Suspect]
     Dosage: 40 MILLIGRAM
     Route: 048
     Dates: start: 20110330, end: 20110412
  24. LENADEX [Suspect]
     Dosage: 20 MILLIGRAM
     Route: 048
     Dates: start: 20110511, end: 20110524
  25. LENADEX [Suspect]
     Dosage: 20 MILLIGRAM
     Route: 048
     Dates: start: 20110608, end: 20110621
  26. LENADEX [Suspect]
     Dosage: 12 MILLIGRAM
     Route: 048
     Dates: start: 20110622, end: 20110705
  27. LENADEX [Suspect]
     Dosage: 8 MILLIGRAM
     Route: 048
     Dates: start: 20110706, end: 20110802
  28. LENADEX [Suspect]
     Dosage: 8 MILLIGRAM
     Route: 048
     Dates: start: 20110803, end: 20110830
  29. LENADEX [Suspect]
     Dosage: 8 MILLIGRAM
     Route: 048
     Dates: start: 20110831, end: 20110927
  30. LENADEX [Suspect]
     Dosage: 8 MILLIGRAM
     Route: 048
     Dates: start: 20110928, end: 20111011
  31. LENADEX [Suspect]
     Dosage: 8 MILLIGRAM
     Route: 048
     Dates: start: 20111123, end: 20111220
  32. LENADEX [Suspect]
     Dosage: 8 MILLIGRAM
     Route: 048
     Dates: start: 20111221, end: 20120117
  33. LENADEX [Suspect]
     Dosage: 8 MILLIGRAM
     Route: 048
     Dates: start: 20120118, end: 20120214
  34. LENADEX [Suspect]
     Dosage: 8 MILLIGRAM
     Route: 048
     Dates: start: 20120215, end: 20120313
  35. LENADEX [Suspect]
     Dosage: 8 MILLIGRAM
     Route: 048
     Dates: start: 20120316, end: 20120410
  36. LENADEX [Suspect]
     Dosage: 8 MILLIGRAM
     Route: 048
     Dates: start: 20120411, end: 20120508
  37. LENADEX [Suspect]
     Dosage: 8 MILLIGRAM
     Route: 048
     Dates: start: 20120509, end: 20120605
  38. LENADEX [Suspect]
     Dosage: 8 MILLIGRAM
     Route: 048
     Dates: start: 20120606, end: 20120703
  39. LENADEX [Suspect]
     Dosage: 8 MILLIGRAM
     Route: 048
     Dates: start: 20120704, end: 20120731
  40. LENADEX [Suspect]
     Dosage: 8 MILLIGRAM
     Route: 048
     Dates: start: 20120801, end: 20120828
  41. LENADEX [Suspect]
     Dosage: 8 MILLIGRAM
     Route: 048
     Dates: start: 20120829
  42. LENADEX [Suspect]
     Dosage: 8 MILLIGRAM
     Route: 048
     Dates: start: 20121003, end: 20121024
  43. BAYASPIRIN [Concomitant]
     Indication: ANGINA PECTORIS
     Dosage: 100 MILLIGRAM
     Route: 048
     Dates: start: 2008
  44. ZOMETA [Concomitant]
     Indication: PLASMA CELL MYELOMA
     Route: 041
     Dates: start: 20110228, end: 20110228
  45. ZOMETA [Concomitant]
     Route: 041
     Dates: start: 20110330, end: 20110330
  46. ZOMETA [Concomitant]
     Route: 041
     Dates: start: 20110607, end: 20110607
  47. ZOMETA [Concomitant]
     Route: 041
     Dates: start: 20110705, end: 20110705
  48. ZOMETA [Concomitant]
     Route: 041
     Dates: start: 20110802, end: 20110802
  49. ZOMETA [Concomitant]
     Route: 041
     Dates: start: 20110913, end: 20110913
  50. ZOMETA [Concomitant]
     Route: 041
     Dates: start: 20111011, end: 20111011
  51. ZOMETA [Concomitant]
     Route: 041
     Dates: start: 20120131, end: 20120131
  52. ZOMETA [Concomitant]
     Route: 041
     Dates: start: 20120228, end: 20120228
  53. ZOMETA [Concomitant]
     Route: 041
     Dates: start: 20120327, end: 20120327
  54. ZOMETA [Concomitant]
     Route: 041
     Dates: start: 20120605, end: 20120605
  55. ZOMETA [Concomitant]
     Route: 041
     Dates: start: 20120703, end: 20120703
  56. ZOMETA [Concomitant]
     Route: 041
     Dates: start: 20120731, end: 20120731
  57. ZOMETA [Concomitant]
     Route: 041
     Dates: start: 20120828, end: 20120828
  58. ZOMETA [Concomitant]
     Route: 041
     Dates: start: 20120925, end: 20120925
  59. BAKTAR [Concomitant]
     Indication: PROPHYLAXIS
     Dosage: 1 TABLET
     Route: 048
     Dates: start: 20110226, end: 20110426
  60. BAKTAR [Concomitant]
     Dosage: .5 TABLET
     Route: 048
     Dates: start: 20110427
  61. BAKTAR [Concomitant]
     Route: 048
     Dates: start: 20110622
  62. ITRIZOLE [Concomitant]
     Indication: PROPHYLAXIS
     Dosage: 200 MILLIGRAM
     Route: 048
     Dates: start: 20110226
  63. ITOROL [Concomitant]
     Indication: ANGINA PECTORIS
     Dosage: 40 MILLIGRAM
     Route: 048
     Dates: start: 2008
  64. TAKEPRON [Concomitant]
     Indication: PROPHYLAXIS
     Dosage: 15 MILLIGRAM
     Route: 048
     Dates: start: 20110206
  65. MAGMITT [Concomitant]
     Indication: CONSTIPATION
     Dosage: 1980 MILLIGRAM
     Route: 048
     Dates: start: 20110206
  66. MAINTATE [Concomitant]
     Indication: HYPERTENSION
     Dosage: 5 MILLIGRAM
     Route: 048
     Dates: start: 20110206
  67. LENDORMIN [Concomitant]
     Indication: INSOMNIA
     Route: 048
     Dates: start: 20110206
  68. MEYLON [Concomitant]
     Indication: PROPHYLAXIS
     Route: 041
     Dates: start: 20110228, end: 20110304
  69. BASEN [Concomitant]
     Indication: PROPHYLAXIS
     Dosage: .9 MILLIGRAM
     Route: 048
     Dates: start: 20110325
  70. PROMAC [Concomitant]
     Indication: PROPHYLAXIS
     Route: 048
     Dates: start: 20110621
  71. NOVAMIN [Concomitant]
     Indication: PROPHYLAXIS
     Dosage: 15 MILLIGRAM
     Route: 048
     Dates: start: 20110705, end: 20110719
  72. OXYCONTIN [Concomitant]
     Indication: PLASMA CELL MYELOMA
     Dosage: 10 MILLIGRAM
     Route: 048
     Dates: start: 20110705, end: 20110913
  73. OXYCONTIN [Concomitant]
     Route: 048
     Dates: start: 20110914, end: 20111023
  74. OXYCONTIN [Concomitant]
     Dosage: 20 MILLIGRAM
     Route: 048
     Dates: start: 20111103, end: 20111103
  75. OXINORM [Concomitant]
     Indication: PLASMA CELL MYELOMA
     Route: 048
     Dates: start: 20110705
  76. ALDACTONE A [Concomitant]
     Indication: PROPHYLAXIS
     Dosage: 4 MILLIGRAM
     Route: 048
     Dates: start: 20110817, end: 20110830
  77. LUPRAC [Concomitant]
     Indication: PROPHYLAXIS
     Dosage: 4 MILLIGRAM
     Route: 048
     Dates: start: 20110831
  78. KLARICID [Concomitant]
     Indication: PLASMA CELL MYELOMA
     Dosage: 800 MILLIGRAM
     Route: 048
     Dates: start: 20120315, end: 20120403
  79. KLARICID [Concomitant]
     Dosage: 800 MILLIGRAM
     Route: 048
     Dates: start: 20120410, end: 20120501
  80. KLARICID [Concomitant]
     Dosage: 800 MILLIGRAM
     Route: 048
     Dates: start: 20120508, end: 20120528
  81. KLARICID [Concomitant]
     Dosage: 800 MILLIGRAM
     Route: 048
     Dates: start: 20120605, end: 20120626
  82. KLARICID [Concomitant]
     Dosage: 800 MILLIGRAM
     Route: 048
     Dates: start: 20120703, end: 20120724
  83. KLARICID [Concomitant]
     Dosage: 800 MILLIGRAM
     Route: 048
     Dates: start: 20120731, end: 20120821
  84. KLARICID [Concomitant]
     Dosage: 800 MILLIGRAM
     Route: 048
     Dates: start: 20120828, end: 20120918
  85. KLARICID [Concomitant]
     Dosage: 800 MILLIGRAM
     Route: 048
     Dates: start: 20121002, end: 20121030

REACTIONS (14)
  - Large intestine perforation [Recovered/Resolved]
  - Liver disorder [Recovered/Resolved]
  - Haemoglobin decreased [Recovered/Resolved]
  - Haemoglobin decreased [Not Recovered/Not Resolved]
  - Neuropathy peripheral [Not Recovered/Not Resolved]
  - Neutrophil count decreased [Recovered/Resolved]
  - Decreased appetite [Recovered/Resolved]
  - Dysgeusia [Not Recovered/Not Resolved]
  - Neutrophil count decreased [Recovered/Resolved]
  - Hyperglycaemia [Recovering/Resolving]
  - Nasopharyngitis [Recovered/Resolved]
  - Oedema peripheral [Not Recovered/Not Resolved]
  - White blood cell count decreased [Recovered/Resolved]
  - Platelet count decreased [Recovered/Resolved]
